FAERS Safety Report 17605567 (Version 1)
Quarter: 2020Q1

REPORT INFORMATION
  Report Type: Report from Study
  Country: TW (occurrence: TW)
  Receive Date: 20200331
  Receipt Date: 20200331
  Transmission Date: 20200409
  Serious: Yes (Death, Life-Threatening)
  Sender: FDA-Public Use
  Company Number: TW-TOLMAR, INC.-2018TW009760

PATIENT
  Age: 76 Year
  Sex: Male

DRUGS (1)
  1. ELIGARD [Suspect]
     Active Substance: LEUPROLIDE ACETATE
     Indication: HORMONE-DEPENDENT PROSTATE CANCER
     Dosage: 22.5 MG, EVERY 3 MONTHS
     Route: 058
     Dates: start: 20180209, end: 20180810

REACTIONS (2)
  - Multiple organ dysfunction syndrome [Fatal]
  - Weight decreased [Not Recovered/Not Resolved]

NARRATIVE: CASE EVENT DATE: 20180810
